FAERS Safety Report 25044408 (Version 1)
Quarter: 2025Q1

REPORT INFORMATION
  Report Type: Other
  Country: CA (occurrence: CA)
  Receive Date: 20250306
  Receipt Date: 20250306
  Transmission Date: 20250408
  Serious: No
  Sender: TRIS PHARMA, INC.
  Company Number: CA-TRIS PHARMA, INC.-25CA011867

PATIENT

DRUGS (11)
  1. QUILLIVANT XR [Suspect]
     Active Substance: METHYLPHENIDATE HYDROCHLORIDE
     Indication: Adjuvant therapy
  2. ARIPIPRAZOLE [Suspect]
     Active Substance: ARIPIPRAZOLE
     Indication: Adjuvant therapy
  3. BUPROPION [Suspect]
     Active Substance: BUPROPION
     Indication: Depression
  4. CITALOPRAM [Suspect]
     Active Substance: CITALOPRAM
     Indication: Depression
  5. DESVENLAFAXINE SUCCINATE [Suspect]
     Active Substance: DESVENLAFAXINE SUCCINATE
     Indication: Depression
  6. LEVOMILNACIPRAN [Suspect]
     Active Substance: LEVOMILNACIPRAN
     Indication: Depression
  7. MODAFINIL [Suspect]
     Active Substance: MODAFINIL
     Indication: Adjuvant therapy
  8. SERTRALINE [Suspect]
     Active Substance: SERTRALINE HYDROCHLORIDE
     Indication: Depression
  9. DULOXETINE HYDROCHLORIDE [Suspect]
     Active Substance: DULOXETINE HYDROCHLORIDE
     Indication: Depression
  10. VILAZODONE [Suspect]
     Active Substance: VILAZODONE
     Indication: Depression
  11. VORTIOXETINE [Suspect]
     Active Substance: VORTIOXETINE
     Indication: Depression

REACTIONS (1)
  - Drug ineffective [Unknown]
